FAERS Safety Report 15734864 (Version 1)
Quarter: 2018Q4

REPORT INFORMATION
  Report Type: Spontaneous
  Country: PT (occurrence: PT)
  Receive Date: 20181218
  Receipt Date: 20181218
  Transmission Date: 20190205
  Serious: Yes (Other)
  Sender: FDA-Public Use
  Company Number: PT-GLENMARK PHARMACEUTICALS-2018GMK038718

PATIENT
  Age: 65 Year
  Sex: Female

DRUGS (1)
  1. ROSUVASTATIN CALCIUM. [Suspect]
     Active Substance: ROSUVASTATIN CALCIUM
     Indication: HYPERCHOLESTEROLAEMIA
     Dosage: 10 MG, OD
     Route: 065

REACTIONS (1)
  - Lichenoid keratosis [Recovered/Resolved]
